FAERS Safety Report 9292902 (Version 2)
Quarter: 2013Q2

REPORT INFORMATION
  Report Type: Spontaneous
  Country: IT (occurrence: IL)
  Receive Date: 20130516
  Receipt Date: 20130523
  Transmission Date: 20140414
  Serious: Yes (Disabling)
  Sender: FDA-Public Use
  Company Number: IL-PFIZER INC-2011024278

PATIENT
  Age: 33 Year
  Sex: Male

DRUGS (3)
  1. PANTOPRAZOLE [Suspect]
     Dosage: UNK
     Route: 061
  2. PANTOPRAZOLE [Suspect]
     Dosage: UNK
     Route: 061
  3. PANTOPRAZOLE [Suspect]
     Dosage: UNK
     Route: 061

REACTIONS (1)
  - Dermatitis contact [Recovered/Resolved with Sequelae]
